FAERS Safety Report 22256720 (Version 1)
Quarter: 2023Q2

REPORT INFORMATION
  Report Type: Report from Study
  Country: FR (occurrence: FR)
  Receive Date: 20230426
  Receipt Date: 20230426
  Transmission Date: 20230721
  Serious: Yes (Other)
  Sender: FDA-Public Use
  Company Number: FR-TAKEDA-2023TUS041082

PATIENT
  Sex: Male
  Weight: 78 kg

DRUGS (1)
  1. MARIBAVIR [Suspect]
     Active Substance: MARIBAVIR
     Indication: Cytomegalovirus infection
     Dosage: 400 MILLIGRAM, BID
     Route: 048
     Dates: start: 20230109, end: 20230208

REACTIONS (3)
  - Cholecystitis [Unknown]
  - Systemic bacterial infection [Unknown]
  - Cholelithiasis [Unknown]
